FAERS Safety Report 18472380 (Version 3)
Quarter: 2023Q1

REPORT INFORMATION
  Report Type: Other
  Country: US (occurrence: None)
  Receive Date: 20201106
  Receipt Date: 20230123
  Transmission Date: 20230418
  Serious: Yes (Other)
  Sender: FDA-Public Use
  Company Number: US-ROCHE-2359403

PATIENT
  Age: 34 Year
  Sex: Female
  Weight: 93.070 kg

DRUGS (31)
  1. OCREVUS [Suspect]
     Active Substance: OCRELIZUMAB
     Indication: Relapsing-remitting multiple sclerosis
     Route: 042
     Dates: start: 20180626
  2. OCREVUS [Suspect]
     Active Substance: OCRELIZUMAB
     Route: 042
     Dates: start: 20180705
  3. OCREVUS [Suspect]
     Active Substance: OCRELIZUMAB
     Route: 042
     Dates: start: 20190104
  4. OCREVUS [Suspect]
     Active Substance: OCRELIZUMAB
     Route: 042
     Dates: start: 201801, end: 20181202
  5. OCREVUS [Suspect]
     Active Substance: OCRELIZUMAB
     Route: 042
     Dates: start: 20201118
  6. KLONOPIN [Suspect]
     Active Substance: CLONAZEPAM
     Indication: Heart rate increased
     Route: 048
     Dates: start: 20180327
  7. KLONOPIN [Suspect]
     Active Substance: CLONAZEPAM
     Indication: Anxiety
  8. VITAMIN D3 [Concomitant]
     Active Substance: CHOLECALCIFEROL
  9. ZANAFLEX [Concomitant]
     Active Substance: TIZANIDINE HYDROCHLORIDE
     Dosage: TAKE 1 BY MOUTH 3 TIMES DAILY FOR SPASTICITY
     Route: 048
     Dates: start: 20150805
  10. CARVEDILOL [Concomitant]
     Active Substance: CARVEDILOL
     Dosage: 1 TABLET BY MOUTH
  11. COPAXONE [Concomitant]
     Active Substance: GLATIRAMER ACETATE
     Dosage: INJECT 40 ML/MG SQ THREE DAYS WEEKLY
     Route: 058
  12. AMLODIPINE [Concomitant]
     Active Substance: AMLODIPINE BESYLATE
     Dosage: DAILY
     Route: 048
  13. DOCUSATE SODIUM [Concomitant]
     Active Substance: DOCUSATE SODIUM
     Route: 048
  14. LOVENOX [Concomitant]
     Active Substance: ENOXAPARIN SODIUM
     Route: 058
  15. FOLIC ACID [Concomitant]
     Active Substance: FOLIC ACID
     Route: 048
  16. INSULIN NOS [Concomitant]
     Active Substance: INSULIN NOS
     Dosage: 2-10 UNITS
     Route: 058
  17. MELATONIN [Concomitant]
     Active Substance: MELATONIN
     Dosage: EVERY NIGHT
     Route: 048
  18. METHYLPREDNISOLONE SODIUM SUCCINATE [Concomitant]
     Active Substance: METHYLPREDNISOLONE SODIUM SUCCINATE
     Dosage: EVERY 24 H
     Route: 042
  19. NICOTINE [Concomitant]
     Active Substance: NICOTINE
     Dosage: ONE PATCH DAILY 600
     Route: 062
  20. PANTOPRAZOLE [Concomitant]
     Active Substance: PANTOPRAZOLE
     Dosage: DAILY
     Route: 048
  21. POLYETHYLENE GLYCOL 3350 [Concomitant]
     Active Substance: POLYETHYLENE GLYCOL 3350
     Dosage: DAILY
     Route: 048
  22. LABETALOL [Concomitant]
     Active Substance: LABETALOL\LABETALOL HYDROCHLORIDE
  23. ONDANSETRON [Concomitant]
     Active Substance: ONDANSETRON
  24. ACETAMINOPHEN [Concomitant]
     Active Substance: ACETAMINOPHEN
  25. OXYCODONE AND ACETAMINOPHEN [Concomitant]
     Active Substance: ACETAMINOPHEN\OXYCODONE HYDROCHLORIDE
  26. TIZANIDINE HYDROCHLORIDE [Concomitant]
     Active Substance: TIZANIDINE HYDROCHLORIDE
     Route: 050
  27. PRENATAL PLUS IRON [Concomitant]
     Active Substance: .ALPHA.-TOCOPHEROL ACETATE, DL-\.BETA.-CAROTENE\ASCORBIC ACID\CALCIUM CARBONATE\CHOLECALCIFEROL\CUPR
     Route: 048
  28. TRIAMCINOLONE [Concomitant]
     Active Substance: TRIAMCINOLONE
     Route: 061
  29. VITAMIN D2 [Concomitant]
     Active Substance: ERGOCALCIFEROL
     Route: 048
  30. DALFAMPRIDINE [Concomitant]
     Active Substance: DALFAMPRIDINE
     Route: 048
     Dates: start: 2022
  31. PROZAC [Concomitant]
     Active Substance: FLUOXETINE HYDROCHLORIDE
     Indication: Depression

REACTIONS (7)
  - Multiple sclerosis relapse [Recovered/Resolved]
  - Asthenia [Unknown]
  - Vomiting [Unknown]
  - JC polyomavirus test positive [Unknown]
  - Wheelchair user [Not Recovered/Not Resolved]
  - Joint hyperextension [Not Recovered/Not Resolved]
  - Maternal exposure before pregnancy [Unknown]

NARRATIVE: CASE EVENT DATE: 20180626
